FAERS Safety Report 19611056 (Version 4)
Quarter: 2021Q4

REPORT INFORMATION
  Report Type: Report from Study
  Country: CN (occurrence: CN)
  Receive Date: 20210726
  Receipt Date: 20211203
  Transmission Date: 20220303
  Serious: Yes (Hospitalization)
  Sender: FDA-Public Use
  Company Number: CN-ALLERGAN-2126070US

PATIENT
  Sex: Male
  Weight: 77 kg

DRUGS (10)
  1. DEXAMETHASONE [Suspect]
     Active Substance: DEXAMETHASONE
     Indication: Macular oedema
     Dosage: 0.7 MG, SINGLE
     Route: 031
     Dates: start: 20200609, end: 20200609
  2. NIFEDIPINE [Concomitant]
     Active Substance: NIFEDIPINE
     Indication: Hypertension
     Dosage: 10 MG, BID
     Route: 048
     Dates: start: 202003
  3. METOPROLOL TARTRATE [Concomitant]
     Active Substance: METOPROLOL TARTRATE
     Indication: Hypertension
     Dosage: 12.5 MG, BID
     Route: 048
     Dates: start: 202003
  4. DICLOFENAC SODIUM [Concomitant]
     Active Substance: DICLOFENAC SODIUM
     Indication: Gout
     Dosage: 75 MG, PRN
     Route: 048
     Dates: start: 2017
  5. LEVOFLOXACIN HYDROCHLORIDE [Concomitant]
     Active Substance: LEVOFLOXACIN HYDROCHLORIDE
     Indication: Postoperative care
     Dosage: 1 GTT, QID
     Route: 047
     Dates: start: 20210713
  6. PREDNISOLONE ACETATE [Concomitant]
     Active Substance: PREDNISOLONE ACETATE
     Indication: Postoperative care
     Dosage: 1 GTT, QID, REDUCED ONCE A WEEK
     Route: 047
     Dates: start: 20210714
  7. COMPOUND TROPICAMIDE [Concomitant]
     Indication: Postoperative care
     Dosage: 1 GTT, TID
     Route: 047
     Dates: start: 20210714
  8. TOBRAMYCIN AND DEXAMETHASONE [Concomitant]
     Active Substance: DEXAMETHASONE\TOBRAMYCIN
     Indication: Postoperative care
     Dosage: 1 DF(CM), QHS
     Route: 047
     Dates: start: 20210714
  9. JOLETHIN [Concomitant]
     Active Substance: JOLETHIN
     Indication: Postoperative care
     Dosage: 1 DF(PILL), TID
     Route: 048
     Dates: start: 20210714
  10. ADENOSINE DISODIUM TRIPHOSPHATE [Concomitant]
     Indication: Postoperative care
     Dosage: 1 DF(PILL), TID
     Route: 048
     Dates: start: 20210714

REACTIONS (3)
  - Epiretinal membrane [Recovered/Resolved]
  - Macular hole [Recovered/Resolved]
  - Cataract [Recovered/Resolved]

NARRATIVE: CASE EVENT DATE: 20210712
